FAERS Safety Report 6494918-6 (Version None)
Quarter: 2009Q4

REPORT INFORMATION
  Report Type: 
  Country: None (occurrence: None)
  Receive Date: 20091214
  Receipt Date: 20090408
  Transmission Date: 20100525
  Serious: No
  Sender: FDA-Public Use
  Company Number: US-BRISTOL-MYERS SQUIBB COMPANY-14580344

PATIENT
  Age: 42 Year
  Sex: Female

DRUGS (1)
  1. ABILIFY [Suspect]
     Indication: MAJOR DEPRESSION
     Dosage: THE PATIENT WAS INSTRUCTED TO TAKE THE ARIPIPRAZOLE IN THE MORNING INSTEAD OF TAKING AT BEDTIME

REACTIONS (1)
  - INSOMNIA [None]
